FAERS Safety Report 8117975-X (Version None)
Quarter: 2012Q1

REPORT INFORMATION
  Report Type: 
  Country: None (occurrence: None)
  Receive Date: 20120201
  Receipt Date: 20120117
  Transmission Date: 20120608
  Serious: Yes (Hospitalization)
  Sender: FDA-Public Use
  Company Number: TPA2012A00470

PATIENT

DRUGS (1)
  1. FEBURIC (FEBUXOSTAT) [Suspect]
     Dosage: 10 MG (10 MG, 1 IN 1 D), PER ORAL
     Route: 048

REACTIONS (2)
  - ALTERED STATE OF CONSCIOUSNESS [None]
  - RENAL DISORDER [None]
